FAERS Safety Report 11909414 (Version 5)
Quarter: 2016Q3

REPORT INFORMATION
  Report Type: Spontaneous
  Country: US (occurrence: US)
  Receive Date: 20160112
  Receipt Date: 20160825
  Transmission Date: 20161109
  Serious: Yes (Other)
  Sender: FDA-Public Use
  Company Number: US-TEVA-609652USA

PATIENT
  Age: 37 Year
  Sex: Female

DRUGS (1)
  1. ZECUITY [Suspect]
     Active Substance: SUMATRIPTAN SUCCINATE
     Indication: HEADACHE
     Route: 062
     Dates: start: 20151111, end: 20151111

REACTIONS (15)
  - Application site burn [Recovered/Resolved]
  - Sunburn [Recovered/Resolved]
  - Underdose [Unknown]
  - Application site warmth [Recovered/Resolved]
  - Application site urticaria [Recovered/Resolved]
  - Application site irritation [Recovered/Resolved]
  - Application site erythema [Recovered/Resolved]
  - Application site dryness [Recovered/Resolved]
  - Product leakage [Unknown]
  - Product adhesion issue [Unknown]
  - Drug effect decreased [Unknown]
  - Device battery issue [Unknown]
  - Drug ineffective [Unknown]
  - Product physical issue [Unknown]
  - Application site discolouration [Recovered/Resolved]

NARRATIVE: CASE EVENT DATE: 20151111
